FAERS Safety Report 6418266-5 (Version None)
Quarter: 2009Q4

REPORT INFORMATION
  Report Type: 
  Country: None (occurrence: None)
  Receive Date: 20091028
  Receipt Date: 20091017
  Transmission Date: 20100525
  Serious: Yes (Other)
  Sender: FDA-Public Use
  Company Number: BR-PFIZER INC-2009214252

PATIENT
  Age: 61 Year

DRUGS (5)
  1. CHAMPIX [Suspect]
     Indication: TOBACCO USER
     Dosage: UNK
     Route: 048
     Dates: start: 20090103, end: 20090101
  2. CHAMPIX [Suspect]
     Dosage: 1 MG, 2X/DAY
     Route: 048
     Dates: start: 20090101, end: 20090330
  3. FENOBARBITAL [Concomitant]
     Indication: CONVULSION
     Dosage: 100 MG DAILY
     Route: 048
     Dates: start: 20090105, end: 20090305
  4. FORMOTEROL W/BUDESONIDE [Concomitant]
     Indication: CHRONIC OBSTRUCTIVE PULMONARY DISEASE
     Dosage: 24UG FORMOTEROL/800UG BUDESONIDE DAILY
     Route: 055
     Dates: start: 20060101
  5. IPRATROPIUM [Concomitant]
     Indication: CHRONIC OBSTRUCTIVE PULMONARY DISEASE
     Dosage: 18 UG DAILY
     Route: 055
     Dates: start: 20060101

REACTIONS (3)
  - DYSGEUSIA [None]
  - PAROSMIA [None]
  - WEIGHT DECREASED [None]
